FAERS Safety Report 14606945 (Version 1)
Quarter: 2018Q1

REPORT INFORMATION
  Report Type: Spontaneous
  Country: US (occurrence: US)
  Receive Date: 20180307
  Receipt Date: 20180307
  Transmission Date: 20180509
  Serious: No
  Sender: FDA-Public Use
  Company Number: US-BAYER-2018-040878

PATIENT
  Age: 89 Year
  Sex: Male

DRUGS (10)
  1. FLOMAX [Concomitant]
     Active Substance: TAMSULOSIN HYDROCHLORIDE
  2. MIRALAX [Suspect]
     Active Substance: POLYETHYLENE GLYCOL 3350
     Indication: GASTROINTESTINAL DISORDER
     Dosage: 1 PACKET PER DAY DOSE
     Route: 048
     Dates: start: 201801
  3. ALIGN [Concomitant]
     Active Substance: BIFIDOBACTERIUM LONGUM SUBSP. INFANTIS
  4. ATORVASTATIN [Concomitant]
     Active Substance: ATORVASTATIN
  5. COUMADIN [Concomitant]
     Active Substance: WARFARIN SODIUM
  6. FINASTERIDE. [Concomitant]
     Active Substance: FINASTERIDE
  7. AMOXICILLIN. [Concomitant]
     Active Substance: AMOXICILLIN
  8. BAYER LOW DOSE [Concomitant]
     Active Substance: ASPIRIN
     Indication: ISCHAEMIC HEART DISEASE PROPHYLAXIS
  9. COLACE [Concomitant]
     Active Substance: DOCUSATE SODIUM
  10. VITAMIN K [Concomitant]
     Active Substance: PHYTONADIONE

REACTIONS (2)
  - Drug prescribing error [Unknown]
  - Product use issue [Unknown]

NARRATIVE: CASE EVENT DATE: 201801
